FAERS Safety Report 9758512 (Version 1)
Quarter: 2013Q4

REPORT INFORMATION
  Report Type: Spontaneous
  Country: US (occurrence: None)
  Receive Date: 20131216
  Receipt Date: 20131216
  Transmission Date: 20140711
  Serious: No
  Sender: FDA-Public Use
  Company Number: CABO-13002754

PATIENT
  Age: 53 Year
  Sex: Male

DRUGS (1)
  1. COMETRIQ (CABOZANTINIB) CAPSULE [Suspect]
     Indication: PROSTATE CANCER
     Dosage: 60 MG, QD, ORAL
     Dates: start: 20130326

REACTIONS (7)
  - Testicular swelling [None]
  - Penile oedema [None]
  - Urine output decreased [None]
  - Urine flow decreased [None]
  - Oedema peripheral [None]
  - Eye disorder [None]
  - Diarrhoea [None]
